FAERS Safety Report 7300754-0 (Version None)
Quarter: 2011Q1

REPORT INFORMATION
  Report Type: 
  Country: None (occurrence: None)
  Receive Date: 20110218
  Receipt Date: 20110125
  Transmission Date: 20110831
  Serious: No
  Sender: FDA-Public Use
  Company Number: US-B.I. PHARMACEUTICALS,INC./RIDGEFIELD-2011-BP-02571BP

PATIENT
  Sex: Male

DRUGS (6)
  1. METOPROLOL [Suspect]
     Indication: HYPERTENSION
     Dates: start: 20110104
  2. PRADAXA [Suspect]
     Dates: start: 20110104
  3. NIASPAN [Concomitant]
     Indication: BLOOD CHOLESTEROL INCREASED
     Dates: start: 20020101
  4. RYTHMOL [Suspect]
     Indication: ATRIAL FIBRILLATION
     Dates: end: 20110119
  5. FLECAINIDE ACETATE [Suspect]
     Indication: ATRIAL FIBRILLATION
     Dates: start: 20110119
  6. CRESTOR [Concomitant]
     Indication: BLOOD CHOLESTEROL INCREASED
     Dates: start: 20020101

REACTIONS (2)
  - HEADACHE [None]
  - ATRIAL FIBRILLATION [None]
